FAERS Safety Report 7770035-X (Version None)
Quarter: 2011Q3

REPORT INFORMATION
  Report Type: 
  Country: None (occurrence: None)
  Receive Date: 20110922
  Receipt Date: 20100527
  Transmission Date: 20111222
  Serious: No
  Sender: FDA-Public Use
  Company Number: US-ASTRAZENECA-2008UW19656

PATIENT
  Age: 24 Year
  Sex: Female
  Weight: 83.9 kg

DRUGS (22)
  1. SEROQUEL [Suspect]
     Route: 048
     Dates: start: 19990318, end: 20070101
  2. ZYPREXA [Concomitant]
  3. PROZAC [Concomitant]
     Route: 048
     Dates: end: 19990308
  4. SEROQUEL [Suspect]
     Indication: ANXIETY
     Route: 048
     Dates: start: 19990308
  5. SEROQUEL [Suspect]
     Indication: DEPRESSION
     Route: 048
     Dates: start: 19990308
  6. SYMBYAX [Concomitant]
  7. ESKALITH [Concomitant]
     Dates: start: 20040907
  8. SEROQUEL [Suspect]
     Route: 048
     Dates: start: 19990318, end: 20070101
  9. SEROQUEL [Suspect]
     Route: 048
     Dates: start: 19990318, end: 20070101
  10. SEROQUEL [Suspect]
     Route: 048
     Dates: start: 19991119
  11. HALDOL [Concomitant]
  12. RISPERDAL [Concomitant]
  13. DESYREL [Concomitant]
     Dosage: 100-150 MG
     Route: 048
     Dates: start: 19990308
  14. ESKALITH [Concomitant]
     Dosage: TWO BID
     Route: 048
     Dates: start: 19990308
  15. CELEXA [Concomitant]
     Dates: start: 20040907
  16. SEROQUEL [Suspect]
     Route: 048
     Dates: start: 19991119
  17. DEPAKOTE [Concomitant]
     Route: 048
     Dates: end: 19990308
  18. DEPAKOTE [Concomitant]
     Dates: start: 20040907
  19. SEROQUEL [Suspect]
     Indication: BIPOLAR DISORDER
     Route: 048
     Dates: start: 19990308
  20. SEROQUEL [Suspect]
     Route: 048
     Dates: start: 19991119
  21. ABILIFY [Concomitant]
  22. ESKALITH [Concomitant]
     Dosage: 300 MG TWO BID
     Route: 048
     Dates: start: 19991119

REACTIONS (6)
  - GLYCOSURIA [None]
  - BLOOD CHOLESTEROL INCREASED [None]
  - INTERVERTEBRAL DISC PROTRUSION [None]
  - OBESITY [None]
  - HYPERLIPIDAEMIA [None]
  - TYPE 2 DIABETES MELLITUS [None]
